FAERS Safety Report 12991437 (Version 2)
Quarter: 2017Q1

REPORT INFORMATION
  Report Type: Report from Study
  Country: US (occurrence: US)
  Receive Date: 20161201
  Receipt Date: 20170119
  Transmission Date: 20170428
  Serious: Yes (Other)
  Sender: FDA-Public Use
  Company Number: PHEH2016US031258

PATIENT
  Age: 63 Year
  Sex: Male

DRUGS (1)
  1. COSENTYX [Suspect]
     Active Substance: SECUKINUMAB
     Indication: PSORIASIS
     Dosage: 300 MG, QMO
     Route: 058
     Dates: start: 201604, end: 201611

REACTIONS (3)
  - Dysphagia [Unknown]
  - Oesophageal discomfort [Recovered/Resolved with Sequelae]
  - Panic attack [Unknown]

NARRATIVE: CASE EVENT DATE: 201605
